FAERS Safety Report 24342123 (Version 1)
Quarter: 2024Q3

REPORT INFORMATION
  Report Type: Spontaneous
  Country: GB (occurrence: GB)
  Receive Date: 20240920
  Receipt Date: 20240920
  Transmission Date: 20241017
  Serious: Yes (Other)
  Sender: TEVA
  Company Number: GB-THERAMEX-2024002129

PATIENT
  Age: 51 Year
  Sex: Female

DRUGS (4)
  1. PROGESTERONE [Suspect]
     Active Substance: PROGESTERONE
     Indication: Product used for unknown indication
     Route: 065
  2. ESTRADIOL [Suspect]
     Active Substance: ESTRADIOL
     Indication: Product used for unknown indication
     Dosage: EVOREL 100
     Route: 062
     Dates: start: 2021, end: 2024
  3. ESTRADIOL [Suspect]
     Active Substance: ESTRADIOL
     Indication: Product used for unknown indication
     Dosage: BATCH ON WHICH ADVERSE EVENT AND PQC OCCURRED, EVOREL 100
     Route: 062
     Dates: start: 202408
  4. ESTRADIOL [Suspect]
     Active Substance: ESTRADIOL
     Indication: Product used for unknown indication
     Dosage: LAST BATCH, EVOREL 100
     Route: 062
     Dates: start: 202409

REACTIONS (3)
  - Vaginal haemorrhage [Unknown]
  - Oestrogen deficiency [Unknown]
  - Product adhesion issue [Unknown]
